FAERS Safety Report 10155657 (Version 1)
Quarter: 2014Q2

REPORT INFORMATION
  Report Type: Report from Study
  Country: US (occurrence: US)
  Receive Date: 20140506
  Receipt Date: 20140506
  Transmission Date: 20141212
  Serious: Yes (Hospitalization)
  Sender: FDA-Public Use
  Company Number: US-GLAXOSMITHKLINE-A1071656A

PATIENT
  Sex: Male
  Weight: 12.3 kg

DRUGS (13)
  1. NELARABINE [Suspect]
     Indication: NON-HODGKIN^S LYMPHOMA
     Route: 042
  2. VINCRISTINE [Suspect]
     Dosage: 1.5MGM2 CYCLIC
     Route: 042
  3. DEXAMETHASONE [Suspect]
     Indication: NON-HODGKIN^S LYMPHOMA
     Dosage: 5MGM2 TWICE PER DAY
     Route: 048
  4. DOXORUBICIN [Suspect]
     Indication: NON-HODGKIN^S LYMPHOMA
     Route: 042
  5. PEG-ASPARAGINASE [Suspect]
     Indication: NON-HODGKIN^S LYMPHOMA
     Route: 030
  6. METHOTREXATE [Suspect]
     Indication: NON-HODGKIN^S LYMPHOMA
     Route: 037
  7. CYCLOPHOSPHAMIDE [Suspect]
     Indication: NON-HODGKIN^S LYMPHOMA
     Route: 042
  8. CYTARABINE [Suspect]
     Indication: NON-HODGKIN^S LYMPHOMA
  9. THIOGUANINE [Suspect]
     Indication: NON-HODGKIN^S LYMPHOMA
     Route: 048
  10. DAUNORUBICIN [Suspect]
     Indication: NON-HODGKIN^S LYMPHOMA
  11. MERCAPTOPURINE [Suspect]
     Indication: NON-HODGKIN^S LYMPHOMA
  12. PREDNISONE [Suspect]
     Indication: NON-HODGKIN^S LYMPHOMA
  13. RADIATION [Concomitant]
     Indication: NON-HODGKIN^S LYMPHOMA

REACTIONS (2)
  - Leukoencephalopathy [Recovering/Resolving]
  - Convulsion [Recovering/Resolving]
